FAERS Safety Report 15227871 (Version 1)
Quarter: 2018Q3

REPORT INFORMATION
  Report Type: Spontaneous
  Country: US (occurrence: US)
  Receive Date: 20180706
  Receipt Date: 20180706
  Transmission Date: 20181010
  Serious: No
  Sender: FDA-Public Use
  Company Number: None

PATIENT
  Age: 14 Year
  Sex: Male

DRUGS (1)
  1. HONEST MINERAL SUNSCREEN BROAD SPECTRUM SPF 50 [Suspect]
     Active Substance: ZINC OXIDE

REACTIONS (2)
  - Vomiting [None]
  - Syncope [None]

NARRATIVE: CASE EVENT DATE: 20180607
